FAERS Safety Report 11606853 (Version 3)
Quarter: 2016Q2

REPORT INFORMATION
  Report Type: Spontaneous
  Country: US (occurrence: US)
  Receive Date: 20151007
  Receipt Date: 20160519
  Transmission Date: 20160815
  Serious: Yes (Hospitalization, Other)
  Sender: FDA-Public Use
  Company Number: US-GLAXOSMITHKLINE-US2015GSK141925

PATIENT
  Age: 50 Year
  Sex: Male

DRUGS (2)
  1. TYLENOL [Concomitant]
     Active Substance: ACETAMINOPHEN
  2. LAMICTAL [Suspect]
     Active Substance: LAMOTRIGINE
     Indication: SEIZURE
     Dosage: 100 MG, TID
     Route: 048
     Dates: start: 201407

REACTIONS (5)
  - Seizure [Unknown]
  - Head injury [Unknown]
  - Amnesia [Unknown]
  - Abasia [Unknown]
  - Fall [Unknown]

NARRATIVE: CASE EVENT DATE: 201410
